FAERS Safety Report 8324766-3 (Version None)
Quarter: 2012Q2

REPORT INFORMATION
  Report Type: 
  Country: None (occurrence: None)
  Receive Date: 20120501
  Receipt Date: 20120419
  Transmission Date: 20120825
  Serious: Yes (Hospitalization, Other)
  Sender: FDA-Public Use
  Company Number: PHHY2012EC030950

PATIENT
  Sex: Female

DRUGS (8)
  1. CAPOTEN [Concomitant]
     Dosage: 50 MG
     Route: 060
  2. DIOVAN [Suspect]
     Dosage: 80 MG, DAILY
     Route: 048
     Dates: start: 20120404
  3. NORVASC [Concomitant]
     Dosage: 10 MG
  4. DIOVAN [Suspect]
     Dosage: 160 MG, DAILY
     Route: 048
     Dates: start: 20120323, end: 20120403
  5. DIOVAN [Suspect]
     Indication: HYPERTENSION
     Dosage: 320 MG, DAILY
     Route: 048
     Dates: start: 20020101, end: 20120322
  6. PLENACOR [Concomitant]
     Dosage: 50 MG
  7. ALEVIAN DUO [Concomitant]
     Dosage: UNK
  8. ALDACTONE [Concomitant]
     Dosage: 25 MG

REACTIONS (11)
  - GASTRITIS ATROPHIC [None]
  - HYPOTENSION [None]
  - MALAISE [None]
  - WEIGHT DECREASED [None]
  - PALPITATIONS [None]
  - RECTAL HAEMORRHAGE [None]
  - GASTRITIS [None]
  - CEREBRAL CALCIFICATION [None]
  - HYPERTENSION [None]
  - NEURODEGENERATIVE DISORDER [None]
  - COLONIC POLYP [None]
